FAERS Safety Report 20022187 (Version 4)
Quarter: 2022Q1

REPORT INFORMATION
  Report Type: Spontaneous
  Country: CZ (occurrence: CZ)
  Receive Date: 20211102
  Receipt Date: 20220307
  Transmission Date: 20220423
  Serious: Yes (Other)
  Sender: FDA-Public Use
  Company Number: CZ-MEDO2008-L202012072

PATIENT
  Age: 53 Year
  Sex: Female

DRUGS (7)
  1. METOPROLOL [Suspect]
     Active Substance: METOPROLOL
     Indication: Migraine
     Dosage: 200 MILLIGRAM, ONCE A DAY,
     Route: 048
     Dates: start: 201101, end: 2011
  2. METOPROLOL [Suspect]
     Active Substance: METOPROLOL
     Indication: Migraine without aura
     Dosage: 200 MILLIGRAM, ONCE A DAY
     Route: 048
     Dates: start: 201101, end: 201208
  3. METOPROLOL [Suspect]
     Active Substance: METOPROLOL
     Dosage: 50 MILLIGRAM, ONCE A DAY
     Route: 048
     Dates: start: 201601, end: 2016
  4. TOPIRAMATE [Suspect]
     Active Substance: TOPIRAMATE
     Indication: Migraine
     Dosage: UNK
     Route: 065
  5. VENLAFAXINE [Suspect]
     Active Substance: VENLAFAXINE HYDROCHLORIDE
     Indication: Migraine
     Dosage: 75 MILLIGRAM, ONCE A DAY
     Route: 048
     Dates: start: 201208, end: 201212
  6. ACETAMINOPHEN\CAFFEINE\GUAIFENESIN [Suspect]
     Active Substance: ACETAMINOPHEN\CAFFEINE\GUAIFENESIN
     Indication: Migraine
     Dosage: UNK
     Route: 065
  7. VALPROATE [Suspect]
     Active Substance: VALPROIC ACID
     Indication: Migraine
     Dosage: UNK
     Route: 065

REACTIONS (10)
  - Presyncope [Unknown]
  - Palpitations [Recovered/Resolved]
  - Blood pressure increased [Recovered/Resolved]
  - Depression [Recovered/Resolved]
  - Cardiovascular disorder [Recovered/Resolved]
  - Drug ineffective [Recovered/Resolved]
  - Medication overuse headache [Unknown]
  - Alopecia [Unknown]
  - Migraine [Unknown]
  - Weight increased [Unknown]

NARRATIVE: CASE EVENT DATE: 20111201
